FAERS Safety Report 26083101 (Version 1)
Quarter: 2025Q4

REPORT INFORMATION
  Report Type: Spontaneous
  Country: US (occurrence: None)
  Receive Date: 20251124
  Receipt Date: 20251124
  Transmission Date: 20260118
  Serious: No
  Sender: FDA-CTU
  Company Number: None

PATIENT
  Age: 50 Year
  Sex: Female
  Weight: 99 kg

DRUGS (5)
  1. METOPROLOL SUCCINATE [Suspect]
     Active Substance: METOPROLOL SUCCINATE
     Indication: Hypertension
     Dosage: OTHER QUANTITY : 1 TABLET(S);?FREQUENCY : DAILY;?
     Route: 048
  2. DIAZEPAM [Concomitant]
     Active Substance: DIAZEPAM
  3. LISINOPRIL [Concomitant]
     Active Substance: LISINOPRIL
  4. COENZYME Q10 [Concomitant]
     Active Substance: DIETARY SUPPLEMENT\UBIDECARENONE
  5. FENBENDAZOLE [Concomitant]
     Active Substance: FENBENDAZOLE

REACTIONS (7)
  - Chest discomfort [None]
  - Dyspnoea [None]
  - Chest discomfort [None]
  - Productive cough [None]
  - Hyperventilation [None]
  - Hypoaesthesia [None]
  - Muscular weakness [None]

NARRATIVE: CASE EVENT DATE: 20251122
